FAERS Safety Report 15555327 (Version 1)
Quarter: 2018Q4

REPORT INFORMATION
  Report Type: Report from Study
  Country: US (occurrence: US)
  Receive Date: 20181026
  Receipt Date: 20181026
  Transmission Date: 20190205
  Serious: Yes (Other)
  Sender: FDA-Public Use
  Company Number: US-IPSEN BIOPHARMACEUTICALS, INC.-2018-00475

PATIENT
  Age: 18 Year
  Sex: Male

DRUGS (5)
  1. NUTROPIN AQ [Suspect]
     Active Substance: SOMATROPIN
     Indication: GROWTH HORMONE DEFICIENCY
     Route: 058
  2. LEVOTHYROXINE. [Concomitant]
     Active Substance: LEVOTHYROXINE
  3. CHOLECALCIFEROL [Concomitant]
     Active Substance: CHOLECALCIFEROL
  4. FLOVENT HFA [Concomitant]
     Active Substance: FLUTICASONE PROPIONATE
     Dosage: 1 PUFF
  5. ALBUTEROL. [Concomitant]
     Active Substance: ALBUTEROL
     Route: 065

REACTIONS (12)
  - Insulin-like growth factor decreased [Unknown]
  - Thyroxine free abnormal [Unknown]
  - Memory impairment [Not Recovered/Not Resolved]
  - Apnoea [Not Recovered/Not Resolved]
  - Vitamin D abnormal [Unknown]
  - Blood bilirubin increased [Unknown]
  - Anxiety [Unknown]
  - Feeling abnormal [Unknown]
  - Nasal crease [Not Recovered/Not Resolved]
  - Mental impairment [Not Recovered/Not Resolved]
  - Alanine aminotransferase [Unknown]
  - Aspartate aminotransferase increased [Unknown]

NARRATIVE: CASE EVENT DATE: 20150114
